FAERS Safety Report 9822838 (Version 1)
Quarter: 2014Q1

REPORT INFORMATION
  Report Type: Spontaneous
  Country: US (occurrence: US)
  Receive Date: 20140116
  Receipt Date: 20140116
  Transmission Date: 20141002
  Serious: Yes (Other)
  Sender: FDA-Public Use
  Company Number: US-BAYER-2014-005264

PATIENT
  Sex: 0

DRUGS (1)
  1. XOFIGO [Suspect]
     Dosage: UNK
     Dates: start: 20140108

REACTIONS (2)
  - Nausea [None]
  - Dizziness [None]
